FAERS Safety Report 19189471 (Version 1)
Quarter: 2021Q2

REPORT INFORMATION
  Report Type: Spontaneous
  Country: US (occurrence: US)
  Receive Date: 20210428
  Receipt Date: 20210428
  Transmission Date: 20210717
  Serious: Yes (Hospitalization)
  Sender: FDA-Public Use
  Company Number: US-GLAXOSMITHKLINE-US2021090720

PATIENT
  Age: 62 Year
  Sex: Female

DRUGS (2)
  1. ADVAIR DISKUS [Suspect]
     Active Substance: FLUTICASONE PROPIONATE\SALMETEROL XINAFOATE
     Indication: ASTHMA
     Dosage: 1 PUFF(S), BID, 500/50MCG
     Route: 055
  2. VENTOLIN HFA [Suspect]
     Active Substance: ALBUTEROL SULFATE
     Indication: ASTHMA
     Dosage: 2 PUFF(S), Z, EVERY 8 HOURS AS NEEDED
     Route: 055
     Dates: start: 201001

REACTIONS (2)
  - Product use in unapproved indication [Unknown]
  - Hysterectomy [Recovering/Resolving]

NARRATIVE: CASE EVENT DATE: 20210415
